FAERS Safety Report 26211051 (Version 1)
Quarter: 2025Q4

REPORT INFORMATION
  Report Type: Spontaneous
  Country: US (occurrence: US)
  Receive Date: 20251230
  Receipt Date: 20251230
  Transmission Date: 20260117
  Serious: Yes (Hospitalization, Other)
  Sender: TEVA
  Company Number: US-TEVA-VS-3406049

PATIENT
  Age: 63 Year
  Sex: Female

DRUGS (4)
  1. GABAPENTIN [Suspect]
     Active Substance: GABAPENTIN
     Indication: Procedural pain
     Route: 065
     Dates: start: 202512, end: 202512
  2. OXYCODONE [Suspect]
     Active Substance: OXYCODONE
     Indication: Procedural pain
     Route: 065
     Dates: start: 202512
  3. OXYCODONE [Suspect]
     Active Substance: OXYCODONE
     Indication: Procedural pain
     Route: 065
     Dates: start: 202512
  4. UNSPECIFIED INGREDIENT [Suspect]
     Active Substance: UNSPECIFIED INGREDIENT
     Indication: Procedural pain
     Route: 065
     Dates: start: 202512

REACTIONS (14)
  - Loss of consciousness [Recovered/Resolved]
  - Pain [Recovered/Resolved]
  - Feeding disorder [Recovering/Resolving]
  - Hypophagia [Recovering/Resolving]
  - Migraine with aura [Recovering/Resolving]
  - Fatigue [Recovered/Resolved]
  - Dehydration [Recovering/Resolving]
  - Vision blurred [Recovering/Resolving]
  - Toxicity to various agents [Recovering/Resolving]
  - Nausea [Recovering/Resolving]
  - Malnutrition [Recovering/Resolving]
  - Aphasia [Recovering/Resolving]
  - Fluid intake reduced [Recovering/Resolving]
  - Blister [Recovering/Resolving]

NARRATIVE: CASE EVENT DATE: 20251201
